FAERS Safety Report 14546844 (Version 2)
Quarter: 2018Q1

REPORT INFORMATION
  Report Type: Spontaneous
  Country: US (occurrence: US)
  Receive Date: 20180219
  Receipt Date: 20180305
  Transmission Date: 20180509
  Serious: No
  Sender: FDA-Public Use
  Company Number: US-PFIZER INC-2018065235

PATIENT
  Age: 73 Year
  Sex: Female
  Weight: 77.11 kg

DRUGS (4)
  1. PROCARDIA XL [Suspect]
     Active Substance: NIFEDIPINE
     Indication: CARDIAC DISORDER
     Dosage: 30 MG, ONCE DAILY
     Route: 048
  2. LISINOPRIL. [Concomitant]
     Active Substance: LISINOPRIL
     Indication: BLOOD PRESSURE ABNORMAL
     Dosage: 40 MG, 1X/DAY
     Route: 048
  3. LOSARTAN. [Concomitant]
     Active Substance: LOSARTAN
     Indication: BLOOD PRESSURE ABNORMAL
     Dosage: UNK, 1X/DAY (100-25MG TABLET ONCE DAILY)
     Route: 048
     Dates: start: 2014
  4. ATENOLOL. [Concomitant]
     Active Substance: ATENOLOL
     Indication: BLOOD PRESSURE ABNORMAL
     Dosage: 50 MG, 2X/DAY
     Route: 048

REACTIONS (5)
  - Depression [Unknown]
  - Asthenia [Unknown]
  - Nervousness [Unknown]
  - Chest pain [Not Recovered/Not Resolved]
  - Intentional product misuse [Unknown]

NARRATIVE: CASE EVENT DATE: 20180206
